FAERS Safety Report 8849400 (Version 1)
Quarter: 2012Q4

REPORT INFORMATION
  Report Type: Spontaneous
  Country: US (occurrence: None)
  Receive Date: 20121017
  Receipt Date: 20121017
  Transmission Date: 20130627
  Serious: Yes (Other)
  Sender: FDA-Public Use
  Company Number: AUR-APL-2012-04385

PATIENT
  Age: 46 Year
  Sex: Female

DRUGS (3)
  1. LOSARTAN [Suspect]
     Indication: HYPERTENSION
  2. METFORMIN\SITAGLIPTIN [Suspect]
     Indication: DIABETES
  3. PREDNISONE [Concomitant]

REACTIONS (5)
  - Pruritus [None]
  - Skin hypopigmentation [None]
  - Rash morbilliform [None]
  - Paraesthesia [None]
  - Angioedema [None]
